FAERS Safety Report 7818018-5 (Version None)
Quarter: 2011Q4

REPORT INFORMATION
  Report Type: 
  Country: None (occurrence: None)
  Receive Date: 20111017
  Receipt Date: 20111012
  Transmission Date: 20120403
  Serious: No
  Sender: FDA-Public Use
  Company Number: US-PFIZER INC-2011244876

PATIENT
  Sex: Female

DRUGS (2)
  1. NADOLOL [Suspect]
     Dosage: UNK
  2. QUINAPRIL HCL [Suspect]
     Dosage: UNK

REACTIONS (1)
  - DRUG INEFFECTIVE [None]
